FAERS Safety Report 9601391 (Version 2)
Quarter: 2013Q4

REPORT INFORMATION
  Report Type: Spontaneous
  Country: US (occurrence: US)
  Receive Date: 20131007
  Receipt Date: 20131007
  Transmission Date: 20140711
  Serious: Yes (Death, Hospitalization)
  Sender: FDA-Public Use
  Company Number: US-BIOGENIDEC-2006BI014052

PATIENT
  Age: 50 Year
  Sex: Female
  Weight: 63 kg

DRUGS (4)
  1. AVONEX [Suspect]
     Indication: MULTIPLE SCLEROSIS
     Route: 030
     Dates: start: 19960701
  2. MORPHINE [Concomitant]
  3. KEPPRA [Concomitant]
  4. ROXANOL [Concomitant]
     Indication: PAIN

REACTIONS (8)
  - Electroencephalogram abnormal [Unknown]
  - Cerebral atrophy [Unknown]
  - Aphagia [Fatal]
  - Multiple sclerosis [Fatal]
  - Grand mal convulsion [Recovered/Resolved]
  - Convulsion [Recovered/Resolved]
  - Gait disturbance [Recovered/Resolved]
  - Musculoskeletal disorder [Recovered/Resolved]
